FAERS Safety Report 7967899-3 (Version None)
Quarter: 2011Q4

REPORT INFORMATION
  Report Type: 
  Country: None (occurrence: None)
  Receive Date: 20111209
  Receipt Date: 20111208
  Transmission Date: 20120403
  Serious: Yes (Hospitalization, Other)
  Sender: FDA-Public Use
  Company Number: SE-ROCHE-1014113

PATIENT
  Age: 77 Year
  Sex: Female

DRUGS (1)
  1. AVASTIN [Suspect]
     Indication: PRODUCT USED FOR UNKNOWN INDICATION
     Dosage: CONC F SOL F INF 25 MG/ML
     Route: 031
     Dates: start: 20110908, end: 20111013

REACTIONS (3)
  - DYSPNOEA [None]
  - DIZZINESS [None]
  - NAUSEA [None]
